FAERS Safety Report 12205134 (Version 2)
Quarter: 2016Q2

REPORT INFORMATION
  Report Type: Report from Study
  Country: JP (occurrence: JP)
  Receive Date: 20160323
  Receipt Date: 20160504
  Transmission Date: 20160815
  Serious: Yes (Death, Other)
  Sender: FDA-Public Use
  Company Number: JP-BRISTOL-MYERS SQUIBB COMPANY-BMS-2016-017131

PATIENT
  Age: 54 Year
  Sex: Female

DRUGS (5)
  1. NIVOLUMAB [Suspect]
     Active Substance: NIVOLUMAB
     Dosage: 112 MG, QD
     Route: 041
     Dates: start: 20160127, end: 20160127
  2. NIVOLUMAB [Suspect]
     Active Substance: NIVOLUMAB
     Indication: NON-SMALL CELL LUNG CANCER
     Dosage: 112 MG, QD
     Route: 041
     Dates: start: 20151228, end: 20151228
  3. NIVOLUMAB [Suspect]
     Active Substance: NIVOLUMAB
     Dosage: 112 MG, QD
     Route: 041
     Dates: start: 20160113, end: 20160113
  4. NIVOLUMAB [Suspect]
     Active Substance: NIVOLUMAB
     Dosage: 112 MG, QD
     Route: 041
     Dates: start: 20160210, end: 20160210
  5. AZILVA [Concomitant]
     Active Substance: AZILSARTAN KAMEDOXOMIL
     Indication: PRODUCT USED FOR UNKNOWN INDICATION
     Route: 065

REACTIONS (1)
  - Death [Fatal]
